FAERS Safety Report 7001799-0 (Version None)
Quarter: 2010Q3

REPORT INFORMATION
  Report Type: 
  Country: None (occurrence: None)
  Receive Date: 20100920
  Receipt Date: 20071218
  Transmission Date: 20110219
  Serious: Yes (Hospitalization)
  Sender: FDA-Public Use
  Company Number: US-ASTRAZENECA-2006UW26724

PATIENT
  Age: 19 Year
  Sex: Male
  Weight: 83.9 kg

DRUGS (11)
  1. SEROQUEL [Suspect]
     Indication: DEPRESSION
     Dosage: 100 - 300 MG
     Route: 048
     Dates: start: 20020101, end: 20040101
  2. SEROQUEL [Suspect]
     Indication: INSOMNIA
     Dosage: 100 - 300 MG
     Route: 048
     Dates: start: 20020101, end: 20040101
  3. SEROQUEL [Suspect]
     Dosage: 25MG-50MG
     Route: 048
     Dates: start: 20020510
  4. SEROQUEL [Suspect]
     Dosage: 25MG-50MG
     Route: 048
     Dates: start: 20020510
  5. CYMBALTA [Concomitant]
     Dates: start: 20070821
  6. EFFEXOR XR [Concomitant]
     Dosage: STRENGTH 150MG, 187.5MG  DOSE-150MG-187.5MG EVERY MORNING
     Route: 048
     Dates: start: 20020404
  7. PREVACID [Concomitant]
     Dosage: 15MG 2 Q DAY OR 1 B.I.D.
     Dates: start: 20060222
  8. TRAZODONE HCL [Concomitant]
     Indication: DEPRESSION
     Dates: start: 20020510
  9. TRAZODONE HCL [Concomitant]
     Indication: SOMNOLENCE
     Dates: start: 20020510
  10. IBUPROFEN [Concomitant]
     Indication: BACK PAIN
     Dates: start: 20020404
  11. TYLENOL [Concomitant]
     Indication: HEADACHE
     Dates: start: 20020404

REACTIONS (2)
  - HYPERGLYCAEMIA [None]
  - HYPOGLYCAEMIA [None]
